FAERS Safety Report 5098791-2 (Version None)
Quarter: 2006Q3

REPORT INFORMATION
  Report Type: 
  Country: None (occurrence: None)
  Receive Date: 20060905
  Receipt Date: 20060818
  Transmission Date: 20061208
  Serious: Yes (Other)
  Sender: FDA-Public Use
  Company Number: TRP_0819_2006

PATIENT
  Age: 44 Year
  Sex: Male

DRUGS (4)
  1. RIBASPHERE [Suspect]
     Indication: HEPATITIS C
     Dosage: DF, PO
     Route: 048
     Dates: start: 20050831, end: 20051201
  2. PEGASYS [Suspect]
     Indication: HEPATITIS C
     Dosage: DF, SC
     Route: 058
     Dates: start: 20050831, end: 20051201
  3. RIBASPHERE [Suspect]
     Indication: HEPATITIS C
     Dosage: 1200 MG QDAY PO
     Route: 048
     Dates: start: 20060214, end: 20060620
  4. PEGASYS [Suspect]
     Indication: HEPATITIS C
     Dosage: 180 MCG, SC
     Route: 058
     Dates: start: 20060214

REACTIONS (7)
  - ANOREXIA [None]
  - ASTHENIA [None]
  - FATIGUE [None]
  - INCREASED APPETITE [None]
  - NAUSEA [None]
  - VIRAL LOAD INCREASED [None]
  - WHITE BLOOD CELL COUNT DECREASED [None]
